FAERS Safety Report 15705314 (Version 2)
Quarter: 2019Q1

REPORT INFORMATION
  Report Type: Spontaneous
  Country: US (occurrence: US)
  Receive Date: 20181210
  Receipt Date: 20190130
  Transmission Date: 20190417
  Serious: Yes (Hospitalization, Other)
  Sender: FDA-Public Use
  Company Number: US-INCYTE CORPORATION-2018IN012406

PATIENT

DRUGS (1)
  1. JAKAFI [Suspect]
     Active Substance: RUXOLITINIB
     Indication: MYELOFIBROSIS
     Dosage: 20 MG, BID
     Route: 048
     Dates: start: 20180817

REACTIONS (7)
  - Skin cancer [Unknown]
  - Vertigo [Unknown]
  - Dyspnoea [Unknown]
  - Fall [Unknown]
  - Post procedural infection [Unknown]
  - Head injury [Unknown]
  - Haemoglobin decreased [Unknown]
